FAERS Safety Report 6133615-3 (Version None)
Quarter: 2009Q1

REPORT INFORMATION
  Report Type: 
  Country: None (occurrence: None)
  Receive Date: 20090326
  Receipt Date: 20090316
  Transmission Date: 20090719
  Serious: Yes (Life-Threatening)
  Sender: FDA-Public Use
  Company Number: JP-MERCK-0903USA04339

PATIENT
  Age: 60 Year
  Sex: Female
  Weight: 54 kg

DRUGS (9)
  1. PEPCID [Suspect]
     Indication: PREMEDICATION
     Route: 048
  2. PROPOFOL [Suspect]
     Indication: GENERAL ANAESTHESIA
     Route: 042
  3. PETHIDINE INJECTION BP [Concomitant]
     Route: 065
  4. MIDAZOLAM [Concomitant]
     Route: 065
  5. ATROPINE SULFATE [Concomitant]
     Route: 065
  6. PROPRANOLOL HYDROCHLORIDE [Suspect]
     Route: 042
  7. ALPROSTADIL [Suspect]
     Route: 042
  8. FENTANYL [Concomitant]
     Route: 065
  9. VECURONIUM BROMIDE [Concomitant]
     Route: 065

REACTIONS (1)
  - ARTERIOSPASM CORONARY [None]
